FAERS Safety Report 7433314-1 (Version None)
Quarter: 2011Q2

REPORT INFORMATION
  Report Type: 
  Country: None (occurrence: None)
  Receive Date: 20110422
  Receipt Date: 20110413
  Transmission Date: 20111010
  Serious: Yes (Death, Hospitalization, Other)
  Sender: FDA-Public Use
  Company Number: US-ELI_LILLY_AND_COMPANY-US201103001609

PATIENT
  Sex: Female
  Weight: 36.281 kg

DRUGS (8)
  1. IMURAN [Concomitant]
     Indication: EYE DISORDER
  2. TOPROL-XL [Concomitant]
  3. ANTIHYPERTENSIVES [Concomitant]
     Indication: HYPERTENSION
     Dosage: 2 D/F, UNK
  4. ANTIBIOTICS [Concomitant]
     Indication: EYE DISORDER
     Route: 047
  5. FORTEO [Suspect]
     Indication: OSTEOPOROSIS
     Dosage: 20 UG, DAILY (1/D)
     Dates: start: 20100801, end: 20110216
  6. ASPIRIN [Concomitant]
  7. PLAVIX [Concomitant]
  8. THYROID THERAPY [Concomitant]
     Indication: THYROID DISORDER

REACTIONS (9)
  - PNEUMONIA [None]
  - HEART RATE INCREASED [None]
  - DEATH [None]
  - OROPHARYNGEAL PAIN [None]
  - MALAISE [None]
  - VIRAL INFECTION [None]
  - EATING DISORDER [None]
  - OXYGEN SATURATION DECREASED [None]
  - PAIN [None]
